FAERS Safety Report 25701232 (Version 2)
Quarter: 2025Q4

REPORT INFORMATION
  Report Type: Spontaneous
  Country: BR (occurrence: BR)
  Receive Date: 20250819
  Receipt Date: 20251126
  Transmission Date: 20260118
  Serious: Yes (Other)
  Sender: NOVARTIS
  Company Number: BR-002147023-NVSC2025BR128887

PATIENT
  Sex: Male

DRUGS (2)
  1. COSENTYX [Suspect]
     Active Substance: SECUKINUMAB
     Indication: Product used for unknown indication
     Dosage: 150 MG
     Route: 065
     Dates: start: 2020
  2. COSENTYX [Suspect]
     Active Substance: SECUKINUMAB
     Dosage: 300 MG, 28D (300 MG SOL INJ CT 1 SER PREEN C VD TRANS X 2 ML + 1 CAN APLIC)
     Route: 065

REACTIONS (6)
  - Drug dependence [Unknown]
  - Pain [Not Recovered/Not Resolved]
  - Device deployment issue [Not Recovered/Not Resolved]
  - Device defective [Unknown]
  - Accidental exposure to product [Not Recovered/Not Resolved]
  - Drug dose omission by device [Unknown]
